FAERS Safety Report 24575784 (Version 1)
Quarter: 2024Q4

REPORT INFORMATION
  Report Type: Spontaneous
  Country: US (occurrence: None)
  Receive Date: 20241101
  Receipt Date: 20241101
  Transmission Date: 20250114
  Serious: Yes (Hospitalization)
  Sender: Public
  Company Number: None

PATIENT
  Age: 80 Year
  Sex: Male
  Weight: 96 kg

DRUGS (1)
  1. SIMVASTATIN [Suspect]
     Active Substance: SIMVASTATIN
     Indication: Hyperlipidaemia
     Dosage: 20.00 MG DAILY ORAL
     Route: 048
     Dates: end: 20240605

REACTIONS (3)
  - Rhabdomyolysis [None]
  - Sepsis [None]
  - Drug intolerance [None]

NARRATIVE: CASE EVENT DATE: 20240603
